FAERS Safety Report 16681865 (Version 1)
Quarter: 2019Q3

REPORT INFORMATION
  Report Type: Spontaneous
  Country: CZ (occurrence: CZ)
  Receive Date: 20190808
  Receipt Date: 20190808
  Transmission Date: 20191004
  Serious: Yes (Hospitalization)
  Sender: FDA-Public Use
  Company Number: CZ-ACCORD-150558

PATIENT
  Age: 49 Year
  Sex: Male

DRUGS (2)
  1. PREDNISONE. [Suspect]
     Active Substance: PREDNISONE
     Indication: SARCOIDOSIS
     Dosage: DAILY FOR THE II LINE TREATMENT, DOSE OF 10 MG PER DAY WAS MAINTAINED
  2. METHOTREXATE. [Suspect]
     Active Substance: METHOTREXATE
     Indication: SARCOIDOSIS
     Dosage: SELECTED FOR THE II LINE TREATMENT, WAS ADMINISTERED FOR ONE MONTH

REACTIONS (4)
  - Hypotension [Recovering/Resolving]
  - Circulatory collapse [Recovering/Resolving]
  - Off label use [Unknown]
  - Anaemia [Recovering/Resolving]

NARRATIVE: CASE EVENT DATE: 201309
